FAERS Safety Report 17791753 (Version 1)
Quarter: 2020Q2

REPORT INFORMATION
  Report Type: Spontaneous
  Country: DK (occurrence: DK)
  Receive Date: 20200515
  Receipt Date: 20200515
  Transmission Date: 20200714
  Serious: Yes (Hospitalization)
  Sender: FDA-Public Use
  Company Number: NVSC2020DK129111

PATIENT
  Age: 67 Year
  Sex: Male

DRUGS (7)
  1. RIMACTAN [Suspect]
     Active Substance: RIFAMPIN
     Indication: TUBERCULOSIS
     Dosage: STYRKE: 300 MG.
     Route: 048
     Dates: start: 20181130, end: 20190128
  2. METOCLOPRAMIDE ORIFARM [Concomitant]
     Indication: VOMITING
     Dosage: STYRKE: 10 MG.
     Route: 048
     Dates: start: 20181210, end: 20181228
  3. ISONIAZID ^OBA^ [Suspect]
     Active Substance: ISONIAZID
     Indication: TUBERCULOSIS
     Dosage: STYRKE: 300 MG.
     Route: 048
     Dates: start: 20181130, end: 20190128
  4. NOVOMIX 30 [Concomitant]
     Active Substance: INSULIN ASPART
     Indication: DIABETES MELLITUS
     Dosage: STYRKE: 100 E/ML.DOSIS: 16 IE MORGEN OG 18 IE AFTEN.
     Route: 058
     Dates: start: 20150130
  5. PYRAZINAMID ^SAD^ [Suspect]
     Active Substance: PYRAZINAMIDE
     Indication: TUBERCULOSIS
     Dosage: STYRKE: 500 MG.
     Route: 048
     Dates: start: 20181130, end: 20190128
  6. MYAMBUTOL [Suspect]
     Active Substance: ETHAMBUTOL HYDROCHLORIDE
     Indication: TUBERCULOSIS
     Dosage: STYRKE: 400 MG.
     Route: 048
     Dates: start: 20181130, end: 20190128
  7. INSUMAN RAPID [Concomitant]
     Active Substance: INSULIN HUMAN
     Indication: HYPERGLYCAEMIA
     Dosage: STYRKE: 100 IE/ML.
     Route: 058
     Dates: start: 20181201, end: 20190703

REACTIONS (30)
  - Lip haemorrhage [Unknown]
  - Pain [Unknown]
  - Penile rash [Unknown]
  - Rash [Recovering/Resolving]
  - Dysuria [Unknown]
  - Skin erosion [Not Recovered/Not Resolved]
  - Nausea [Unknown]
  - Swollen tongue [Recovered/Resolved]
  - Lip swelling [Unknown]
  - Dizziness [Unknown]
  - Stevens-Johnson syndrome [Unknown]
  - Liver function test increased [Recovered/Resolved]
  - Liver injury [Not Recovered/Not Resolved]
  - Blood creatinine increased [Recovered/Resolved]
  - Urethral pain [Unknown]
  - Decreased appetite [Not Recovered/Not Resolved]
  - Mouth ulceration [Unknown]
  - Abnormal loss of weight [Unknown]
  - Rash pruritic [Recovering/Resolving]
  - Vomiting [Recovered/Resolved]
  - Malaise [Not Recovered/Not Resolved]
  - Oropharyngeal pain [Unknown]
  - Alanine aminotransferase increased [Recovered/Resolved]
  - Blood sodium decreased [Recovered/Resolved]
  - Fatigue [Not Recovered/Not Resolved]
  - Genital ulceration [Unknown]
  - Pain in extremity [Unknown]
  - Oral pain [Unknown]
  - Oral candidiasis [Unknown]
  - Hyperhidrosis [Unknown]

NARRATIVE: CASE EVENT DATE: 201812
